FAERS Safety Report 7594083-8 (Version None)
Quarter: 2011Q3

REPORT INFORMATION
  Report Type: 
  Country: None (occurrence: None)
  Receive Date: 20110706
  Receipt Date: 20110628
  Transmission Date: 20111222
  Serious: Yes (Hospitalization)
  Sender: FDA-Public Use
  Company Number: US-PFIZER INC-US-WYE-H15323110

PATIENT
  Age: 46 Year
  Sex: Female
  Weight: 72.6 kg

DRUGS (7)
  1. LORATADINE AND PSEUDOEPHEDRINE SULFATE [Suspect]
     Indication: RHINITIS
     Dosage: 1.0 DF, 1X 2 HR
     Route: 048
     Dates: start: 20100316, end: 20100331
  2. METFORMIN [Concomitant]
     Indication: DIABETES MELLITUS
     Dosage: 500 MG, UNK
     Route: 048
     Dates: end: 20100401
  3. AMLODIPINE [Concomitant]
     Indication: HYPERTENSION
     Dosage: UNK
     Route: 048
  4. METFORMIN [Concomitant]
     Dosage: 1000 MG, UNK
     Route: 048
     Dates: start: 20100401
  5. SIMVASTATIN [Concomitant]
     Indication: HYPERCHOLESTEROLAEMIA
     Dosage: UNK
     Route: 048
  6. ACETYLSALICYLIC ACID [Concomitant]
     Indication: HYPERTENSION
     Dosage: 81 MG, UNK
     Route: 048
  7. HYZAAR [Concomitant]
     Indication: HYPERTENSION
     Dosage: UNK
     Route: 048

REACTIONS (11)
  - INSOMNIA [None]
  - RASH [None]
  - HEART RATE INCREASED [None]
  - DRY MOUTH [None]
  - DECREASED APPETITE [None]
  - MOOD ALTERED [None]
  - DYSURIA [None]
  - WEIGHT DECREASED [None]
  - CEREBROVASCULAR ACCIDENT [None]
  - HYPERSENSITIVITY [None]
  - RESTLESSNESS [None]
